FAERS Safety Report 24814078 (Version 1)
Quarter: 2025Q1

REPORT INFORMATION
  Report Type: Spontaneous
  Country: US (occurrence: US)
  Receive Date: 20250107
  Receipt Date: 20250107
  Transmission Date: 20250409
  Serious: No
  Sender: MERCK
  Company Number: US-009507513-2411USA009796

PATIENT
  Age: 43 Year
  Sex: Female

DRUGS (1)
  1. EMEND [Suspect]
     Active Substance: APREPITANT
     Route: 042
     Dates: start: 20241122

REACTIONS (3)
  - Wrong technique in product usage process [Unknown]
  - Labelled drug-drug interaction issue [Unknown]
  - No adverse event [Unknown]

NARRATIVE: CASE EVENT DATE: 20241122
